APPROVED DRUG PRODUCT: CEDAX
Active Ingredient: CEFTIBUTEN DIHYDRATE
Strength: EQ 400MG BASE
Dosage Form/Route: CAPSULE;ORAL
Application: N050685 | Product #002
Applicant: BURKE THERAPEUTICS LLC
Approved: Dec 20, 1995 | RLD: No | RS: No | Type: DISCN